FAERS Safety Report 9786415 (Version 1)
Quarter: 2013Q4

REPORT INFORMATION
  Report Type: Report from Study
  Country: JP (occurrence: JP)
  Receive Date: 20131227
  Receipt Date: 20131227
  Transmission Date: 20140711
  Serious: Yes (Hospitalization, Other)
  Sender: FDA-Public Use
  Company Number: JP-TAKEDA-2013TJP004205

PATIENT
  Age: 64 Year
  Sex: Male

DRUGS (4)
  1. LANSOPRAZOLE [Suspect]
     Indication: PROPHYLAXIS AGAINST GASTROINTESTINAL ULCER
     Dosage: 15 MG, QD
     Route: 048
     Dates: start: 20120726
  2. BAYASPIRIN [Concomitant]
     Indication: THROMBOSIS PROPHYLAXIS
     Dosage: 100 MG, 1 DAYS
     Route: 048
     Dates: start: 20120726
  3. TEGRETOL [Concomitant]
     Indication: EPILEPSY
     Dosage: 200 MG,1 DAYS
     Route: 048
     Dates: start: 20130219
  4. E KEPPRA [Concomitant]
     Indication: EPILEPSY
     Dosage: 1000 MG, 1 DAYS
     Route: 048
     Dates: start: 20130219

REACTIONS (3)
  - Epilepsy [Unknown]
  - Condition aggravated [Unknown]
  - Insomnia [Recovering/Resolving]
